FAERS Safety Report 20532572 (Version 14)
Quarter: 2025Q4

REPORT INFORMATION
  Report Type: Report from Study
  Country: US (occurrence: US)
  Receive Date: 20220301
  Receipt Date: 20251216
  Transmission Date: 20260117
  Serious: No
  Sender: PFIZER
  Company Number: US-PFIZER INC-202101105072

PATIENT
  Age: 80 Year
  Sex: Female
  Weight: 230 kg

DRUGS (4)
  1. IBRANCE [Suspect]
     Active Substance: PALBOCICLIB
     Indication: Breast cancer metastatic
     Dosage: 100 MG, ONCE A DAY FOR 21 DAYS AND OFF 7 DAYS
     Route: 048
     Dates: start: 2020
  2. IBRANCE [Suspect]
     Active Substance: PALBOCICLIB
     Dosage: IBRANCE 100 MG; TAKE 1 TABLET BY MOUTH ONCE DAILY X 21 DAYS OFF 7 DAYS TO COMPLETE 28 DAY CYCLE
     Route: 048
  3. IBRANCE [Suspect]
     Active Substance: PALBOCICLIB
     Dosage: 100MG TAB TAKE 1 DAILY FOR 21 DAYS, 7 DAYS OFF TO COMPLETE A 28 DAY CYCLE
     Route: 048
  4. IBRANCE [Suspect]
     Active Substance: PALBOCICLIB
     Dosage: 100 MG

REACTIONS (1)
  - Weight increased [Unknown]
